FAERS Safety Report 17438315 (Version 7)
Quarter: 2020Q4

REPORT INFORMATION
  Report Type: Report from Study
  Country: None (occurrence: NL)
  Receive Date: 20200220
  Receipt Date: 20201023
  Transmission Date: 20210113
  Serious: Yes (Death, Hospitalization, Other)
  Sender: FDA-Public Use
  Company Number: NL-ABBVIE-18K-114-2328684-00

PATIENT
  Age: 80 Year
  Sex: Male
  Weight: 82 kg

DRUGS (6)
  1. MOVICOLON [Concomitant]
     Active Substance: POLYETHYLENE GLYCOL 3350\POTASSIUM CHLORIDE\SODIUM BICARBONATE\SODIUM CHLORIDE
     Indication: CONSTIPATION
     Dates: end: 20201019
  2. LEVODOPA/CARBIDOPA [Concomitant]
     Active Substance: CARBIDOPA\LEVODOPA
     Indication: PARKINSON^S DISEASE
     Dates: end: 20201019
  3. DUODOPA [Suspect]
     Active Substance: CARBIDOPA\LEVODOPA
     Indication: PARKINSON^S DISEASE
     Dosage: MD 13, CD 6.5, ED 5.5?REMAINS AT 16 HOURS
     Route: 050
     Dates: start: 20151110, end: 20201019
  4. MADOPAR HBS [Concomitant]
     Active Substance: BENSERAZIDE HYDROCHLORIDE\LEVODOPA
     Indication: PARKINSON^S DISEASE
     Dates: end: 20201019
  5. DUODOPA [Suspect]
     Active Substance: CARBIDOPA\LEVODOPA
  6. LAXANS [Concomitant]
     Indication: ABNORMAL FAECES
     Dates: end: 20201019

REACTIONS (44)
  - Urinary tract infection [Not Recovered/Not Resolved]
  - Fibroma [Not Recovered/Not Resolved]
  - Blood pressure decreased [Not Recovered/Not Resolved]
  - Stoma site erythema [Recovered/Resolved]
  - Blood glucose decreased [Unknown]
  - Weight decreased [Recovering/Resolving]
  - Gait disturbance [Unknown]
  - Disorientation [Not Recovered/Not Resolved]
  - Stoma site discharge [Recovered/Resolved]
  - Stress [Not Recovered/Not Resolved]
  - Taste disorder [Recovered/Resolved]
  - Memory impairment [Not Recovered/Not Resolved]
  - Abdominal distension [Not Recovered/Not Resolved]
  - Stoma site discharge [Recovered/Resolved]
  - Cystitis [Recovered/Resolved]
  - Hypophagia [Not Recovered/Not Resolved]
  - Feeling abnormal [Unknown]
  - Fall [Not Recovered/Not Resolved]
  - On and off phenomenon [Recovered/Resolved]
  - Hallucination [Not Recovered/Not Resolved]
  - Stoma site discomfort [Not Recovered/Not Resolved]
  - Asthenia [Unknown]
  - Dizziness [Not Recovered/Not Resolved]
  - Stoma site discharge [Not Recovered/Not Resolved]
  - Intentional device misuse [Not Recovered/Not Resolved]
  - Weight decreased [Recovered/Resolved]
  - Decreased appetite [Not Recovered/Not Resolved]
  - Hypokinesia [Not Recovered/Not Resolved]
  - Drug ineffective [Recovered/Resolved]
  - Constipation [Recovered/Resolved]
  - Malnutrition [Recovered/Resolved]
  - Bowel movement irregularity [Recovered/Resolved]
  - Culture urine positive [Unknown]
  - Abnormal dreams [Not Recovered/Not Resolved]
  - Stoma complication [Not Recovered/Not Resolved]
  - Death [Fatal]
  - Blindness [Not Recovered/Not Resolved]
  - Restlessness [Not Recovered/Not Resolved]
  - Cognitive disorder [Not Recovered/Not Resolved]
  - Mental impairment [Not Recovered/Not Resolved]
  - Balance disorder [Not Recovered/Not Resolved]
  - Fatigue [Not Recovered/Not Resolved]
  - Orthostatic hypotension [Not Recovered/Not Resolved]
  - On and off phenomenon [Unknown]

NARRATIVE: CASE EVENT DATE: 2019
